FAERS Safety Report 25779378 (Version 1)
Quarter: 2025Q3

REPORT INFORMATION
  Report Type: Spontaneous
  Country: CN (occurrence: CN)
  Receive Date: 20250909
  Receipt Date: 20250909
  Transmission Date: 20251021
  Serious: Yes (Other)
  Sender: BAYER HEALTHCARE PHARMACEUTICALS INC.
  Company Number: CN-BAYER-2025A118563

PATIENT
  Age: 68 Year
  Sex: Male

DRUGS (3)
  1. AVELOX [Suspect]
     Active Substance: MOXIFLOXACIN HYDROCHLORIDE
     Indication: Respiratory tract infection
     Dosage: 0.4 G, QD
     Route: 041
     Dates: start: 20250901, end: 20250902
  2. AMINOPHYLLINE\CHLORPHENIRAMINE MALEATE\METHOXYPHENAMINE HYDROCHLORIDE\ [Concomitant]
     Active Substance: AMINOPHYLLINE\CHLORPHENIRAMINE MALEATE\METHOXYPHENAMINE HYDROCHLORIDE\NOSCAPINE
     Indication: Respiratory tract infection
     Dosage: 1 DF, TID
     Route: 048
     Dates: start: 20250826, end: 20250902
  3. CARBOCYSTEINE [Concomitant]
     Active Substance: CARBOCYSTEINE
     Indication: Respiratory tract infection
     Dosage: 25 ML, TID
     Route: 048
     Dates: start: 20250826, end: 20250902

REACTIONS (6)
  - Unresponsive to stimuli [Not Recovered/Not Resolved]
  - Affect lability [Not Recovered/Not Resolved]
  - Slow response to stimuli [None]
  - Food refusal [Not Recovered/Not Resolved]
  - Patient uncooperative [None]
  - Confusional state [Not Recovered/Not Resolved]

NARRATIVE: CASE EVENT DATE: 20250902
